FAERS Safety Report 9469288 (Version 1)
Quarter: 2013Q3

REPORT INFORMATION
  Report Type: Spontaneous
  Country: US (occurrence: None)
  Receive Date: 20130815
  Receipt Date: 20130815
  Transmission Date: 20140515
  Serious: Yes (Death)
  Sender: FDA-Public Use
  Company Number: AXC-2013-000384

PATIENT
  Age: 22 Year
  Sex: Male

DRUGS (1)
  1. ZENPEP [Suspect]
     Indication: CYSTIC FIBROSIS
     Route: 048

REACTIONS (2)
  - Cystic fibrosis [None]
  - Condition aggravated [None]
